FAERS Safety Report 8573211 (Version 4)
Quarter: 2013Q1

REPORT INFORMATION
  Report Type: Spontaneous
  Country: US (occurrence: US)
  Receive Date: 20120522
  Receipt Date: 20130314
  Transmission Date: 20140127
  Serious: Yes (Hospitalization, Other)
  Sender: FDA-Public Use
  Company Number: US-BAYER-2012-049559

PATIENT
  Age: 28 Year
  Sex: Female
  Weight: 78.91 kg

DRUGS (9)
  1. YASMIN [Suspect]
     Indication: CONTRACEPTION
     Dosage: UNK
     Dates: start: 2006, end: 20100831
  2. OCELLA [Suspect]
     Indication: CONTRACEPTION
     Dosage: UNK
     Dates: start: 2006, end: 20100831
  3. ZOFRAN [Concomitant]
     Indication: NAUSEA
  4. VICODIN [Concomitant]
     Indication: PAIN
  5. PERCOCET [Concomitant]
     Indication: PAIN
  6. I.V. SOLUTIONS [Concomitant]
  7. AMOXICILLIN [Concomitant]
     Dosage: 500 MG, UNK
  8. PLAN B [Concomitant]
     Dosage: 1.5 MG, UNK
  9. ASTHMA MEDS [Concomitant]

REACTIONS (8)
  - Cholecystitis acute [None]
  - Deep vein thrombosis [None]
  - Pain in extremity [None]
  - Injury [None]
  - General physical health deterioration [None]
  - Pain [None]
  - Anxiety [None]
  - Emotional distress [None]
